FAERS Safety Report 18612413 (Version 1)
Quarter: 2020Q4

REPORT INFORMATION
  Report Type: Spontaneous
  Country: NL (occurrence: NL)
  Receive Date: 20201214
  Receipt Date: 20201214
  Transmission Date: 20210114
  Serious: Yes (Hospitalization)
  Sender: FDA-Public Use
  Company Number: NL-MYLANLABS-2020M1101156

PATIENT
  Age: 62 Year
  Sex: Female
  Weight: 7 kg

DRUGS (14)
  1. PLANTAGEL [Concomitant]
     Dosage: 3,25 G 2X DAAGS
  2. MULTIVITAMIN                       /00097801/ [Concomitant]
     Active Substance: VITAMINS
     Dosage: 1 X DAAGS 1 TABLET
  3. BACLOFEN. [Concomitant]
     Active Substance: BACLOFEN
     Dosage: TABLET, 5 MG (MILLIGRAM)
  4. NITROFURANTOIN. [Suspect]
     Active Substance: NITROFURANTOIN
     Indication: ANTIBIOTIC PROPHYLAXIS
     Dosage: (NITROFURANTIONE 2 X 50
     Dates: start: 2018, end: 20201016
  5. FAMPRIDINA [Concomitant]
     Active Substance: DALFAMPRIDINE
     Dosage: TABLET MET GEREGULEERDE AFGIFTE, 10 MG (MILLIGRAM)
  6. ESOMEPRAZOL                        /01479301/ [Concomitant]
     Active Substance: ESOMEPRAZOLE
     Dosage: MAAGSAPRESISTENTE TABLET, 40 MG (MILLIGRAM)
  7. BACLOFEN. [Concomitant]
     Active Substance: BACLOFEN
     Dosage: TABLET, 2,5 MG (MILLIGRAM)
  8. COLECALCIFEROL [Concomitant]
     Active Substance: CHOLECALCIFEROL
     Dosage: 1 X DAAGS
  9. PREGABALIN. [Concomitant]
     Active Substance: PREGABALIN
     Dosage: CAPSULE, 150 MG (MILLIGRAM)
  10. LOSARTAN                           /01121602/ [Concomitant]
     Active Substance: LOSARTAN
     Dosage: FILMOMHULDE TABLET, 50 MG (MILLIGRAM)
  11. CALCIUM MAGNESIUM                  /00591201/ [Concomitant]
     Dosage: 2 X DAAGS 1 TABLET
  12. RIVOTRIL [Concomitant]
     Active Substance: CLONAZEPAM
     Dosage: TABLET, 0,5 MG (MILLIGRAM)
  13. BACLOFEN. [Concomitant]
     Active Substance: BACLOFEN
     Dosage: TABLET, 10 MG (MILLIGRAM)
  14. MODAFINIL. [Concomitant]
     Active Substance: MODAFINIL
     Dosage: TABLET, 100 MG (MILLIGRAM)

REACTIONS (5)
  - Cough [Recovering/Resolving]
  - Interstitial lung disease [Recovering/Resolving]
  - Dyspnoea [Recovering/Resolving]
  - Body temperature increased [Recovering/Resolving]
  - Therapeutic response unexpected [Unknown]

NARRATIVE: CASE EVENT DATE: 20180614
